FAERS Safety Report 5972827-6 (Version None)
Quarter: 2008Q4

REPORT INFORMATION
  Report Type: 
  Country: None (occurrence: None)
  Receive Date: 20081126
  Receipt Date: 20081126
  Transmission Date: 20090506
  Serious: Yes (Hospitalization)
  Sender: FDA-Public Use
  Company Number: None

PATIENT
  Age: 64 Year
  Weight: 119 kg

DRUGS (2)
  1. WARFARIN SODIUM [Suspect]
     Indication: ATRIAL FLUTTER
     Dosage: 2MG DAILY PO  LONG TRIME
     Route: 048
  2. WARFARIN SODIUM [Suspect]
     Indication: CEREBROVASCULAR ACCIDENT
     Dosage: 2MG DAILY PO  LONG TRIME
     Route: 048

REACTIONS (4)
  - ALCOHOL USE [None]
  - ASTHENIA [None]
  - FATIGUE [None]
  - LOWER GASTROINTESTINAL HAEMORRHAGE [None]
